FAERS Safety Report 4747993-0 (Version None)
Quarter: 2005Q3

REPORT INFORMATION
  Report Type: 
  Country: None (occurrence: None)
  Receive Date: 20050818
  Receipt Date: 20050803
  Transmission Date: 20060218
  Serious: Yes (Hospitalization)
  Sender: FDA-Public Use
  Company Number: JP-SANOFI-SYNTHELABO-A01200505368

PATIENT
  Age: 807 Month
  Sex: Female

DRUGS (5)
  1. MYSLEE [Suspect]
     Indication: DRUG USE FOR UNKNOWN INDICATION
     Dosage: 10 MG
     Route: 048
     Dates: start: 20050719
  2. DECADRON [Concomitant]
     Indication: DRUG USE FOR UNKNOWN INDICATION
     Dosage: 8 MG
     Route: 065
     Dates: start: 20050716, end: 20050716
  3. DECADRON [Concomitant]
     Dosage: 6 MG
     Route: 065
     Dates: start: 20050717, end: 20050717
  4. DECADRON [Concomitant]
     Dosage: 4 MG
     Route: 065
     Dates: start: 20050718, end: 20050718
  5. DECADRON [Concomitant]
     Dosage: 2 MG
     Route: 065
     Dates: start: 20050719, end: 20050720

REACTIONS (4)
  - HEPATIC FUNCTION ABNORMAL [None]
  - HEPATIC NEOPLASM MALIGNANT [None]
  - HYPERHIDROSIS [None]
  - LOSS OF CONSCIOUSNESS [None]
